FAERS Safety Report 4721443-2 (Version None)
Quarter: 2005Q3

REPORT INFORMATION
  Report Type: 
  Country: None (occurrence: None)
  Receive Date: 20050721
  Receipt Date: 20040909
  Transmission Date: 20060218
  Serious: No
  Sender: FDA-Public Use
  Company Number: US-BRISTOL-MYERS SQUIBB COMPANY-12697280

PATIENT
  Sex: Female
  Weight: 66 kg

DRUGS (5)
  1. COUMADIN [Suspect]
     Indication: KNEE OPERATION
     Dosage: THERAPY FROM:  ^AROUND 08-AUG-2004^
     Route: 048
     Dates: start: 20040101
  2. DOCUSATE [Concomitant]
  3. FERROUS SULFATE TAB [Concomitant]
  4. ASCORBIC ACID [Concomitant]
  5. HYDROCORTISONE [Concomitant]

REACTIONS (4)
  - ABDOMINAL DISCOMFORT [None]
  - ABNORMAL FAECES [None]
  - FAECES DISCOLOURED [None]
  - PAIN IN EXTREMITY [None]
